FAERS Safety Report 6882126-6 (Version None)
Quarter: 2010Q3

REPORT INFORMATION
  Report Type: 
  Country: None (occurrence: None)
  Receive Date: 20100729
  Receipt Date: 20100716
  Transmission Date: 20110219
  Serious: Yes (Other)
  Sender: FDA-Public Use
  Company Number: TR-ELI_LILLY_AND_COMPANY-TR201007004970

PATIENT
  Sex: Female
  Weight: 2 kg

DRUGS (3)
  1. HUMULIN N [Suspect]
     Indication: GESTATIONAL DIABETES
     Dosage: 22 U, EACH EVENING
     Route: 064
     Dates: end: 20090605
  2. NOVORAPID [Concomitant]
     Indication: GESTATIONAL DIABETES
     Dosage: 18 U, DAILY (1/D)
     Route: 064
     Dates: end: 20090605
  3. VITAMINS [Concomitant]
     Indication: GESTATIONAL DIABETES
     Dosage: 1 D/F, DAILY (1/D)
     Route: 064
     Dates: end: 20090605

REACTIONS (3)
  - DRUG EXPOSURE DURING PREGNANCY [None]
  - PREMATURE BABY [None]
  - SMALL FOR DATES BABY [None]
